FAERS Safety Report 4284812-3 (Version None)
Quarter: 2004Q1

REPORT INFORMATION
  Report Type: 
  Country: None (occurrence: None)
  Receive Date: 20040203
  Receipt Date: 20040128
  Transmission Date: 20041129
  Serious: No
  Sender: FDA-Public Use
  Company Number: 7291

PATIENT
  Sex: Male

DRUGS (3)
  1. BLEOMYCIN [Suspect]
     Indication: HODGKIN'S DISEASE
     Dosage: 10 MG/M2 FORTNIGHTLY
  2. AMIODARONE HCL [Suspect]
     Dosage: 200 MG
  3. NEBIVOLOL [Concomitant]

REACTIONS (3)
  - COUGH [None]
  - DYSPNOEA EXACERBATED [None]
  - PULMONARY FIBROSIS [None]
